FAERS Safety Report 6828473-5 (Version None)
Quarter: 2010Q3

REPORT INFORMATION
  Report Type: 
  Country: None (occurrence: None)
  Receive Date: 20100709
  Receipt Date: 20070212
  Transmission Date: 20110219
  Serious: Yes (Other)
  Sender: FDA-Public Use
  Company Number: US-PFIZER INC-2007011825

PATIENT
  Sex: Male
  Weight: 74.8 kg

DRUGS (6)
  1. CHANTIX [Suspect]
     Indication: EX-TOBACCO USER
     Dates: start: 20070210, end: 20070210
  2. ZOLOFT [Interacting]
     Dates: start: 20070208
  3. MONOPRIL [Concomitant]
  4. NORVASC [Concomitant]
  5. NEXIUM [Concomitant]
  6. ALL OTHER THERAPEUTIC PRODUCTS [Concomitant]

REACTIONS (3)
  - CHEST PAIN [None]
  - DRUG INTERACTION [None]
  - ORAL DISCOMFORT [None]
